FAERS Safety Report 8904675 (Version 1)
Quarter: 2012Q4

REPORT INFORMATION
  Report Type: 
  Country: US (occurrence: US)
  Receive Date: 20121113
  Receipt Date: 20121113
  Transmission Date: 20130627
  Serious: No
  Sender: FDA-Public Use
  Company Number: US-GLAXOSMITHKLINE-A0960220A

PATIENT
  Age: 49 Year
  Sex: Female

DRUGS (5)
  1. CARVEDILOL [Suspect]
     Indication: CARDIOMYOPATHY
     Dosage: 6.25MG Twice per day
     Route: 048
     Dates: start: 201111
  2. BUMEX [Concomitant]
  3. DIGOXIN [Concomitant]
  4. LISINOPRIL [Concomitant]
  5. POTASSIUM [Concomitant]

REACTIONS (5)
  - Diarrhoea [Recovering/Resolving]
  - Diarrhoea [Unknown]
  - Nausea [Unknown]
  - Irritability [Unknown]
  - Agitation [Unknown]
